FAERS Safety Report 7044882-6 (Version None)
Quarter: 2010Q4

REPORT INFORMATION
  Report Type: 
  Country: None (occurrence: None)
  Receive Date: 20101014
  Receipt Date: 20101007
  Transmission Date: 20110411
  Serious: Yes (Death, Hospitalization)
  Sender: FDA-Public Use
  Company Number: PHHO2010DK13927

PATIENT
  Sex: Female
  Weight: 53.7 kg

DRUGS (11)
  1. BLINDED ALISKIREN ALI+TAB+CF [Suspect]
     Dosage: CODE NOT BROKEN
     Route: 048
     Dates: start: 20100318
  2. ENALAPRIL MALEATE [Suspect]
     Dosage: CODE NOT BROKEN
     Route: 048
     Dates: start: 20100318
  3. BLINDED NO TREATMENT RECEIVED NOMED [Suspect]
     Dosage: CODE NOT BROKEN
     Route: 048
     Dates: start: 20100318
  4. COMPARATOR ENALAPRIL [Suspect]
     Indication: CARDIAC FAILURE
     Dosage: UNK
     Route: 048
     Dates: start: 20100303, end: 20100318
  5. ALISKIREN [Suspect]
     Indication: CARDIAC FAILURE
     Dosage: UNK
     Route: 048
     Dates: start: 20100311, end: 20100318
  6. AMARYL [Concomitant]
     Indication: DIABETES MELLITUS
  7. DIMITONE [Concomitant]
     Indication: CARDIAC FAILURE
     Dosage: UNK
  8. MAGNYL [Concomitant]
     Indication: PROPHYLAXIS
  9. MAREVAN [Concomitant]
     Indication: ATRIAL FIBRILLATION
  10. FURIX [Concomitant]
     Indication: CARDIAC FAILURE
     Dosage: UNK
  11. SPIRIX [Concomitant]
     Indication: CARDIAC FAILURE
     Dosage: UNK

REACTIONS (12)
  - BLOOD GLUCOSE INCREASED [None]
  - CEREBRAL HAEMORRHAGE [None]
  - CEREBROVASCULAR ACCIDENT [None]
  - CONFUSIONAL STATE [None]
  - DEPRESSION [None]
  - HAEMORRHOIDAL HAEMORRHAGE [None]
  - HYPOTENSION [None]
  - LOSS OF CONSCIOUSNESS [None]
  - LUNG DISORDER [None]
  - MONOPARESIS [None]
  - MYOCLONUS [None]
  - URINARY TRACT INFECTION [None]
